FAERS Safety Report 19904945 (Version 2)
Quarter: 2022Q1

REPORT INFORMATION
  Report Type: Report from Study
  Country: AU (occurrence: AU)
  Receive Date: 20210930
  Receipt Date: 20220222
  Transmission Date: 20220424
  Serious: Yes (Other)
  Sender: FDA-Public Use
  Company Number: AU-TAKEDA-2021TUS050693

PATIENT
  Age: 61 Year
  Sex: Male

DRUGS (12)
  1. TEDUGLUTIDE [Suspect]
     Active Substance: TEDUGLUTIDE
     Indication: Short-bowel syndrome
     Dosage: 0.34 MILLILITER, QD
     Route: 058
     Dates: start: 20210731
  2. TEDUGLUTIDE [Suspect]
     Active Substance: TEDUGLUTIDE
     Indication: Short-bowel syndrome
     Dosage: 0.34 MILLILITER, QD
     Route: 058
     Dates: start: 20210731
  3. TEDUGLUTIDE [Suspect]
     Active Substance: TEDUGLUTIDE
     Indication: Short-bowel syndrome
     Dosage: 0.34 MILLILITER, QD
     Route: 058
     Dates: start: 20210731
  4. TEDUGLUTIDE [Suspect]
     Active Substance: TEDUGLUTIDE
     Indication: Short-bowel syndrome
     Dosage: 0.34 MILLILITER, QD
     Route: 058
     Dates: start: 20210731
  5. TEDUGLUTIDE [Suspect]
     Active Substance: TEDUGLUTIDE
     Dosage: 0.34 MILLILITER, QD
     Route: 058
     Dates: start: 20210731
  6. TEDUGLUTIDE [Suspect]
     Active Substance: TEDUGLUTIDE
     Dosage: 0.34 MILLILITER, QD
     Route: 058
     Dates: start: 20210731
  7. TEDUGLUTIDE [Suspect]
     Active Substance: TEDUGLUTIDE
     Dosage: 0.34 MILLILITER, QD
     Route: 058
     Dates: start: 20210731
  8. TEDUGLUTIDE [Suspect]
     Active Substance: TEDUGLUTIDE
     Dosage: 0.34 MILLILITER, QD
     Route: 058
     Dates: start: 20210731
  9. VENTOLIN [Concomitant]
     Active Substance: ALBUTEROL SULFATE
     Dosage: 100 MICROGRAM, 1 PUFF AS REQUIRED
     Route: 048
  10. PERINDOPRIL [Concomitant]
     Active Substance: PERINDOPRIL
     Dosage: 4 MILLIGRAM, BID
     Route: 048
  11. SYMBICORT [Concomitant]
     Active Substance: BUDESONIDE\FORMOTEROL FUMARATE DIHYDRATE
     Dosage: 200 INCREASED FROM 1 PUFF TWICE A DAY TO 2 PUFFS TWICE A DAY, BID
     Route: 048
  12. FORMOTEROL [Concomitant]
     Active Substance: FORMOTEROL
     Dosage: 6 INCREASED FROM 1 PUFF TWICE A DAY TO 2 PUFFS TWICE A DAY, BID
     Route: 048

REACTIONS (6)
  - Dyspnoea at rest [Unknown]
  - Stoma site haemorrhage [Unknown]
  - Condition aggravated [Unknown]
  - Fatigue [Unknown]
  - Abdominal pain [Unknown]
  - Gastrointestinal stoma complication [Unknown]

NARRATIVE: CASE EVENT DATE: 20210807
